FAERS Safety Report 4287079-5 (Version None)
Quarter: 2004Q1

REPORT INFORMATION
  Report Type: 
  Country: None (occurrence: None)
  Receive Date: 20040121
  Receipt Date: 20030617
  Transmission Date: 20041129
  Serious: Yes (Other)
  Sender: FDA-Public Use
  Company Number: A03200301320

PATIENT
  Age: 73 Year
  Sex: Female
  Weight: 72.5755 kg

DRUGS (7)
  1. PLAVIX [Suspect]
     Indication: CEREBROVASCULAR ACCIDENT PROPHYLAXIS
     Dosage: 75 MG QD - ORAL
     Route: 048
     Dates: start: 20021024, end: 20030610
  2. ACETYLSALICYLIC ACID SRT [Concomitant]
  3. AMLODIPINE BESYLATE [Concomitant]
  4. SIMVASTATIN [Concomitant]
  5. HYDROCHLOROTHIAZIDE [Concomitant]
  6. CALCIUM [Concomitant]
  7. LOSARTAN POTASSIUM [Concomitant]

REACTIONS (7)
  - ALBUMIN URINE PRESENT [None]
  - ARTHRALGIA [None]
  - CEREBROVASCULAR ACCIDENT [None]
  - COAGULOPATHY [None]
  - FATIGUE [None]
  - HEADACHE [None]
  - PROTHROMBIN TIME SHORTENED [None]
